FAERS Safety Report 11611149 (Version 1)
Quarter: 2015Q4

REPORT INFORMATION
  Report Type: Report from Study
  Country: PL (occurrence: PL)
  Receive Date: 20151008
  Receipt Date: 20151008
  Transmission Date: 20160304
  Serious: Yes (Hospitalization, Other)
  Sender: FDA-Public Use
  Company Number: PHHY2015PL117010

PATIENT
  Age: 43 Year
  Sex: Female

DRUGS (4)
  1. SANDOSTATIN LAR DEPOT [Suspect]
     Active Substance: OCTREOTIDE ACETATE
     Indication: ACROMEGALY
     Dosage: 20 MG, QMO (EVERY 28 DAYS, 4 INJECTIONS)
     Route: 030
  2. LANREOTIDE [Suspect]
     Active Substance: LANREOTIDE
     Indication: ACROMEGALY
     Dosage: 120 MG, EVERY 28 DAYS
     Route: 065
     Dates: start: 2010, end: 2013
  3. SANDOSTATIN LAR DEPOT [Suspect]
     Active Substance: OCTREOTIDE ACETATE
     Dosage: 30 MG, QMO ( EVERY 28 DAYS, 9 INJECTIONS)
     Route: 030
  4. SANDOSTATIN LAR DEPOT [Suspect]
     Active Substance: OCTREOTIDE ACETATE
     Dosage: 40 MG, QMO (EVERY 28 DAYS )
     Route: 030
     Dates: start: 2014

REACTIONS (13)
  - Cardiomyopathy [Unknown]
  - Dyslipidaemia [Unknown]
  - Therapeutic response decreased [Unknown]
  - Blood prolactin increased [Unknown]
  - Blood glucose abnormal [Unknown]
  - Meningitis [Unknown]
  - Cholelithiasis [Unknown]
  - Insulin-like growth factor increased [Not Recovered/Not Resolved]
  - Hypertension [Unknown]
  - Blood growth hormone increased [Not Recovered/Not Resolved]
  - Diabetes mellitus [Unknown]
  - Goitre [Unknown]
  - Blood chromogranin A increased [Unknown]

NARRATIVE: CASE EVENT DATE: 2008
